FAERS Safety Report 16127950 (Version 1)
Quarter: 2019Q1

REPORT INFORMATION
  Report Type: Spontaneous
  Country: FR (occurrence: FR)
  Receive Date: 20190328
  Receipt Date: 20190328
  Transmission Date: 20190418
  Serious: Yes (Hospitalization)
  Sender: FDA-Public Use
  Company Number: FR-TEVA-2019-FR-1030425

PATIENT
  Age: 80 Year
  Sex: Male
  Weight: 96 kg

DRUGS (4)
  1. TARGOCID [Concomitant]
     Active Substance: TEICOPLANIN
     Indication: ARTHRITIS INFECTIVE
     Route: 042
     Dates: start: 20181221, end: 20181224
  2. VANCOMYCINE [Suspect]
     Active Substance: VANCOMYCIN
     Indication: ARTHRITIS INFECTIVE
     Dosage: 3 GRAM DAILY;
     Route: 042
     Dates: start: 20181109, end: 20181221
  3. RIFADINE [Suspect]
     Active Substance: RIFAMPIN
     Indication: ARTHRITIS INFECTIVE
     Dosage: 1200 MILLIGRAM DAILY;
     Route: 048
     Dates: start: 20181114, end: 20181221
  4. UROREC 8 MG, G?LULE [Concomitant]
     Dosage: 8 MILLIGRAM DAILY;
     Route: 048

REACTIONS (1)
  - Drug reaction with eosinophilia and systemic symptoms [Recovering/Resolving]

NARRATIVE: CASE EVENT DATE: 20181223
